FAERS Safety Report 23308702 (Version 1)
Quarter: 2023Q4

REPORT INFORMATION
  Report Type: Spontaneous
  Country: None (occurrence: IE)
  Receive Date: 20231218
  Receipt Date: 20231218
  Transmission Date: 20240110
  Serious: Yes (Other)
  Sender: FDA-Public Use
  Company Number: IE-B.Braun Medical Inc.-2149491

PATIENT
  Age: 25 Year
  Sex: Female

DRUGS (3)
  1. ACETAMINOPHEN [Suspect]
     Active Substance: ACETAMINOPHEN
  2. CAFFEINE [Suspect]
     Active Substance: CAFFEINE
  3. CODEINE [Suspect]
     Active Substance: CODEINE

REACTIONS (3)
  - Abdominal pain upper [None]
  - Intentional overdose [None]
  - Off label use [None]
